FAERS Safety Report 15825047 (Version 3)
Quarter: 2020Q2

REPORT INFORMATION
  Report Type: Spontaneous
  Country: US (occurrence: US)
  Receive Date: 20190115
  Receipt Date: 20200428
  Transmission Date: 20200713
  Serious: No
  Sender: FDA-Public Use
  Company Number: US-PFIZER INC-2019016225

PATIENT
  Age: 39 Year
  Sex: Female
  Weight: 81.65 kg

DRUGS (4)
  1. GENOTROPIN MQ [Suspect]
     Active Substance: SOMATROPIN
     Indication: GROWTH HORMONE DEFICIENCY
  2. LEVOTHYROXINE. [Concomitant]
     Active Substance: LEVOTHYROXINE
     Indication: THYROID DISORDER
     Dosage: 125 UG, 1X/DAY
     Route: 048
  3. GENOTROPIN MQ [Suspect]
     Active Substance: SOMATROPIN
     Indication: PITUITARY TUMOUR
  4. GENOTROPIN MQ [Suspect]
     Active Substance: SOMATROPIN
     Indication: PITUITARY-DEPENDENT CUSHING^S SYNDROME
     Dosage: 0.6 MG, DAILY
     Route: 058
     Dates: start: 20080409

REACTIONS (9)
  - Blood thyroid stimulating hormone decreased [Unknown]
  - Blood glucose increased [Unknown]
  - Fatigue [Unknown]
  - Malaise [Unknown]
  - Product use in unapproved indication [Unknown]
  - Product dose omission [Not Recovered/Not Resolved]
  - Headache [Unknown]
  - Off label use [Unknown]
  - Weight increased [Unknown]

NARRATIVE: CASE EVENT DATE: 20080409
